FAERS Safety Report 18034600 (Version 1)
Quarter: 2020Q3

REPORT INFORMATION
  Report Type: Spontaneous
  Country: US (occurrence: US)
  Receive Date: 20200716
  Receipt Date: 20200716
  Transmission Date: 20201103
  Serious: No
  Sender: FDA-Public Use
  Company Number: US-DSJP-DSU-2020-120177

PATIENT

DRUGS (1)
  1. ENHERTU [Suspect]
     Active Substance: FAM-TRASTUZUMAB DERUXTECAN-NXKI
     Indication: BREAST CANCER
     Dosage: UNK, ONCE EVERY 3 WK
     Route: 042
     Dates: start: 20200220

REACTIONS (2)
  - Cough [Not Recovered/Not Resolved]
  - Respiratory tract irritation [Not Recovered/Not Resolved]

NARRATIVE: CASE EVENT DATE: 202006
